FAERS Safety Report 22052018 (Version 3)
Quarter: 2023Q2

REPORT INFORMATION
  Report Type: Report from Study
  Country: ES (occurrence: ES)
  Receive Date: 20230302
  Receipt Date: 20230404
  Transmission Date: 20230721
  Serious: Yes (Other)
  Sender: FDA-Public Use
  Company Number: ES-JNJFOC-20230252685

PATIENT

DRUGS (5)
  1. STELARA [Suspect]
     Active Substance: USTEKINUMAB
     Indication: Crohn^s disease
     Route: 040
  2. STELARA [Suspect]
     Active Substance: USTEKINUMAB
     Route: 058
  3. STELARA [Suspect]
     Active Substance: USTEKINUMAB
     Route: 058
  4. STELARA [Suspect]
     Active Substance: USTEKINUMAB
     Route: 058
  5. STELARA [Suspect]
     Active Substance: USTEKINUMAB
     Route: 058

REACTIONS (11)
  - Small intestine adenocarcinoma [Unknown]
  - Uveitis [Unknown]
  - Odynophagia [Unknown]
  - Dyspnoea [Unknown]
  - Infusion related reaction [Unknown]
  - Headache [Unknown]
  - Infection [Unknown]
  - Arthralgia [Unknown]
  - Rash [Unknown]
  - Loss of therapeutic response [Unknown]
  - Off label use [Unknown]
